FAERS Safety Report 25771526 (Version 1)
Quarter: 2025Q3

REPORT INFORMATION
  Report Type: Spontaneous
  Country: US (occurrence: US)
  Receive Date: 20250908
  Receipt Date: 20250908
  Transmission Date: 20251021
  Serious: No
  Sender: DOMPE FARMACEUTICI
  Company Number: US-FARMAPROD-202504-1389

PATIENT
  Age: 80 Year
  Sex: Female

DRUGS (16)
  1. OXERVATE [Suspect]
     Active Substance: CENEGERMIN-BKBJ
     Indication: Neurotrophic keratopathy
     Route: 047
     Dates: start: 20250317
  2. MIEBO [Concomitant]
     Active Substance: PERFLUOROHEXYLOCTANE
  3. CEQUA [Concomitant]
     Active Substance: CYCLOSPORINE
  4. PREDNISOLONE [Concomitant]
     Active Substance: PREDNISOLONE
  5. PILOCARPINE HYDROCHLORIDE [Concomitant]
     Active Substance: PILOCARPINE HYDROCHLORIDE
  6. GABAPENTIN [Concomitant]
     Active Substance: GABAPENTIN
  7. WARFARIN SODIUM [Concomitant]
     Active Substance: WARFARIN SODIUM
  8. LOSARTAN POTASSIUM [Concomitant]
     Active Substance: LOSARTAN POTASSIUM
  9. VITAMIN B3 [Concomitant]
     Active Substance: NIACIN
  10. VITAMIN B12 [Concomitant]
     Active Substance: CYANOCOBALAMIN
  11. IRON [Concomitant]
     Active Substance: IRON
  12. ASPIRIN [Concomitant]
     Active Substance: ASPIRIN
  13. ALENDRONATE SODIUM [Concomitant]
     Active Substance: ALENDRONATE SODIUM
  14. ALLOPURINOL [Concomitant]
     Active Substance: ALLOPURINOL
  15. FAMOTIDINE [Concomitant]
     Active Substance: FAMOTIDINE
  16. VITAL TEARS [Concomitant]

REACTIONS (5)
  - Ocular discomfort [Unknown]
  - Eye pain [Unknown]
  - Eyelid pain [Unknown]
  - Erythema of eyelid [Unknown]
  - Eyelid irritation [Unknown]

NARRATIVE: CASE EVENT DATE: 20250417
